FAERS Safety Report 7923868-0 (Version None)
Quarter: 2011Q4

REPORT INFORMATION
  Report Type: 
  Country: None (occurrence: None)
  Receive Date: 20111117
  Receipt Date: 20110209
  Transmission Date: 20120403
  Serious: No
  Sender: FDA-Public Use
  Company Number: US-AMGEN-USASP2011007759

PATIENT
  Age: 29 Year
  Sex: Female

DRUGS (1)
  1. ENBREL [Suspect]
     Indication: PSORIATIC ARTHROPATHY
     Dates: start: 20040101, end: 20110201

REACTIONS (4)
  - OROPHARYNGEAL PAIN [None]
  - PRODUCTIVE COUGH [None]
  - CHEST DISCOMFORT [None]
  - SPUTUM DISCOLOURED [None]
